FAERS Safety Report 18269327 (Version 1)
Quarter: 2020Q3

REPORT INFORMATION
  Report Type: Spontaneous
  Country: US (occurrence: US)
  Receive Date: 20200915
  Receipt Date: 20200915
  Transmission Date: 20201103
  Serious: No
  Sender: FDA-Public Use
  Company Number: US-JAZZ-2020-US-003842

PATIENT
  Age: 15 Year
  Sex: Male

DRUGS (2)
  1. ERWINAZE [Suspect]
     Active Substance: ASPARAGINASE ERWINIA CHRYSANTHEMI
     Indication: ACUTE LYMPHOCYTIC LEUKAEMIA
     Dosage: 20000 UNITS PER DOSE, 2 TIMES PER DAY
     Route: 030
     Dates: start: 20200311, end: 20200315
  2. LACTULOSE. [Suspect]
     Active Substance: LACTULOSE
     Indication: HYPERAMMONAEMIA
     Dosage: UNKNOWN DOSE
     Route: 065

REACTIONS (2)
  - Vomiting [Unknown]
  - Hyperammonaemia [Not Recovered/Not Resolved]

NARRATIVE: CASE EVENT DATE: 202003
